FAERS Safety Report 7110623-7 (Version None)
Quarter: 2010Q4

REPORT INFORMATION
  Report Type: 
  Country: None (occurrence: None)
  Receive Date: 20101118
  Receipt Date: 20101111
  Transmission Date: 20110411
  Serious: Yes (Death, Hospitalization, Other)
  Sender: FDA-Public Use
  Company Number: PHEH2007US11552

PATIENT
  Sex: Female

DRUGS (25)
  1. ZOMETA [Suspect]
     Dosage: UNK
     Dates: end: 20041201
  2. COLACE [Concomitant]
     Dosage: 100 MG, BID
     Route: 048
  3. DILAUDID [Concomitant]
     Dosage: 2 MG, PRN
  4. NEXIUM [Concomitant]
     Dosage: 40 MG, QD
     Route: 048
  5. PREDNISONE [Concomitant]
     Dosage: 20 MG, QD
     Route: 048
  6. ATIVAN [Concomitant]
     Dosage: 1 MG, PRN
     Route: 048
  7. PHENERGAN ^AVENTIS PHARMA^ [Concomitant]
     Dosage: 12.5 MG, PRN
     Route: 048
  8. PROPOXYPHENE HCL AND ACETAMINOPHEN [Concomitant]
     Dosage: 100 MG, UNK
     Route: 048
  9. CEPHALEXIN [Concomitant]
     Dosage: 205 MG, Q6H
     Route: 048
  10. DEXAMETHASONE [Concomitant]
     Dosage: 40 MG, QD (10EACH 4MG TABS QD)
     Route: 048
  11. OXYCODONE HCL [Concomitant]
     Dosage: 5 MG, PRN
     Route: 048
  12. SULFAMETHOXAZOLE [Concomitant]
     Dosage: UNK
     Route: 048
  13. REGLAN [Concomitant]
     Dosage: 10 MG, PRN
     Route: 048
  14. AZITHROMYCIN [Concomitant]
     Dosage: 250 MG, QD
     Route: 048
  15. LORAZEPAM [Concomitant]
     Dosage: 1 MG, PRN
     Route: 048
  16. PROMETHAZINE [Concomitant]
     Dosage: 25 MG, PRN
     Route: 048
  17. ZOFRAN [Concomitant]
     Dosage: 8 MG, PRN
     Route: 048
  18. TRAMADOL HCL [Concomitant]
     Dosage: 100 MG, QID
     Route: 048
  19. LEVAQUIN [Concomitant]
     Dosage: 500 MG, QD
     Route: 048
  20. PANTOPRAZOLE [Concomitant]
     Dosage: 80 MG, TID
     Route: 048
  21. FLUCONAZOLE [Concomitant]
     Dosage: 100 MG, QD
     Route: 048
  22. NYSTATIN [Concomitant]
     Dosage: 100000 U, QD
     Route: 048
  23. PVK [Concomitant]
     Dosage: 500 MG, QD
     Route: 048
     Dates: start: 20041213
  24. REVLIMID [Concomitant]
     Dosage: 25 MG, UNK
     Route: 048
  25. DARVOCET-N 100 [Concomitant]

REACTIONS (67)
  - AMINO ACID LEVEL INCREASED [None]
  - ANAEMIA [None]
  - ANHEDONIA [None]
  - ANXIETY [None]
  - ATELECTASIS [None]
  - AZOTAEMIA [None]
  - BLOOD CREATININE INCREASED [None]
  - BONE DISORDER [None]
  - BONE PAIN [None]
  - BRAIN MASS [None]
  - BRONCHITIS [None]
  - BURSITIS [None]
  - CARDIAC FAILURE [None]
  - CARDIOMEGALY [None]
  - CHRONIC SINUSITIS [None]
  - CONJUNCTIVITIS [None]
  - DEATH [None]
  - DEBRIDEMENT [None]
  - DENTAL CARIES [None]
  - EMPHYSEMA [None]
  - EXOPHTHALMOS [None]
  - FACET JOINT SYNDROME [None]
  - FIBROUS DYSPLASIA OF BONE [None]
  - FLANK PAIN [None]
  - FRACTURE [None]
  - HAEMATURIA [None]
  - HAEMORRHAGE [None]
  - HERPES ZOSTER [None]
  - HYPERBARIC OXYGEN THERAPY [None]
  - HYPOAESTHESIA [None]
  - HYPOGAMMAGLOBULINAEMIA [None]
  - INJURY [None]
  - INTERVERTEBRAL DISC DEGENERATION [None]
  - INTERVERTEBRAL DISC PROTRUSION [None]
  - JAW OPERATION [None]
  - LUMBAR SPINAL STENOSIS [None]
  - LUNG INFILTRATION [None]
  - METASTASES TO BONE [None]
  - METASTASES TO SPINE [None]
  - MULTIPLE MYELOMA [None]
  - NASAL SINUS CANCER [None]
  - NAUSEA [None]
  - OCULAR NEOPLASM [None]
  - OSTEOLYSIS [None]
  - OSTEOMYELITIS [None]
  - OSTEONECROSIS OF JAW [None]
  - OVARIAN CYST [None]
  - PAIN [None]
  - PAIN IN EXTREMITY [None]
  - PAIN IN JAW [None]
  - PARAESTHESIA [None]
  - PATHOLOGICAL FRACTURE [None]
  - PLASMACYTOSIS [None]
  - PNEUMONIA [None]
  - PROTEINURIA [None]
  - RASH [None]
  - RESPIRATORY DISTRESS [None]
  - SPINAL COMPRESSION FRACTURE [None]
  - SPONDYLOLISTHESIS [None]
  - THROMBOCYTOPENIA [None]
  - TOOTH EXTRACTION [None]
  - TOOTH FRACTURE [None]
  - URINARY TRACT INFECTION [None]
  - VAGINAL HAEMORRHAGE [None]
  - VERTEBROPLASTY [None]
  - VITAMIN B12 DECREASED [None]
  - VOMITING [None]
